FAERS Safety Report 4608742-X (Version None)
Quarter: 2005Q1

REPORT INFORMATION
  Report Type: 
  Country: None (occurrence: None)
  Receive Date: 20050309
  Receipt Date: 20050221
  Transmission Date: 20050727
  Serious: Yes (Life-Threatening)
  Sender: FDA-Public Use
  Company Number: EWC050242874

PATIENT
  Age: 78 Year
  Sex: Male

DRUGS (10)
  1. XIGRIS [Suspect]
     Indication: SEPSIS
     Dates: start: 20050219, end: 20050220
  2. ROCEPHIN [Concomitant]
  3. CIPROFLOXACIN [Concomitant]
  4. TAZOSIN [Concomitant]
  5. ZESTRIL [Concomitant]
  6. DOBUTAMINE HCL [Concomitant]
  7. DOPAMINE [Concomitant]
  8. LASIX [Concomitant]
  9. SOLU-CORTEF [Concomitant]
  10. ZANTAC [Concomitant]

REACTIONS (4)
  - CATHETER SITE HAEMORRHAGE [None]
  - HAEMODIALYSIS [None]
  - NEGATIVE CARDIAC INOTROPIC EFFECT [None]
  - THROMBOCYTOPENIA [None]
